FAERS Safety Report 4876575-5 (Version None)
Quarter: 2006Q1

REPORT INFORMATION
  Report Type: 
  Country: None (occurrence: None)
  Receive Date: 20060110
  Receipt Date: 20060103
  Transmission Date: 20060701
  Serious: Yes (Other)
  Sender: FDA-Public Use
  Company Number: US-JNJFOC-20060100866

PATIENT
  Sex: Female
  Weight: 53.98 kg

DRUGS (4)
  1. REMICADE [Suspect]
     Indication: RHEUMATOID ARTHRITIS
     Dosage: 2 VIALS
     Route: 042
  2. PREDNISONE [Concomitant]
  3. METHOTREXATE [Concomitant]
  4. GOLD COMPOUNDS [Concomitant]

REACTIONS (3)
  - FALL [None]
  - HIP FRACTURE [None]
  - JOINT DISLOCATION [None]
